FAERS Safety Report 9292775 (Version 1)
Quarter: 2013Q2

REPORT INFORMATION
  Report Type: Spontaneous
  Country: US (occurrence: None)
  Receive Date: 20130515
  Receipt Date: 20130515
  Transmission Date: 20140414
  Serious: Yes (Other)
  Sender: FDA-Public Use
  Company Number: None

PATIENT
  Age: 75 Year
  Sex: Female
  Weight: 65.77 kg

DRUGS (1)
  1. CEFTIN [Suspect]
     Indication: EAR INFECTION
     Dosage: ONE TAB
     Dates: start: 20130410, end: 20130420

REACTIONS (2)
  - Diarrhoea [None]
  - Abdominal pain upper [None]
